FAERS Safety Report 9362506 (Version 1)
Quarter: 2013Q2

REPORT INFORMATION
  Report Type: Spontaneous
  Country: US (occurrence: US)
  Receive Date: 20130622
  Receipt Date: 20130622
  Transmission Date: 20140414
  Serious: No
  Sender: FDA-Public Use
  Company Number: US-US-EMD SERONO, INC.-7155093

PATIENT
  Sex: Male

DRUGS (2)
  1. REBIF [Suspect]
     Indication: MULTIPLE SCLEROSIS
     Route: 058
     Dates: start: 20120104
  2. ALEVE [Suspect]
     Indication: INFLUENZA LIKE ILLNESS

REACTIONS (6)
  - Abdominal pain upper [Unknown]
  - Diarrhoea [Unknown]
  - Feeling abnormal [Unknown]
  - Hyperhidrosis [Recovering/Resolving]
  - Influenza like illness [Recovering/Resolving]
  - Fatigue [Recovering/Resolving]
